APPROVED DRUG PRODUCT: METASTRON
Active Ingredient: STRONTIUM CHLORIDE SR-89
Strength: 1mCi/ML
Dosage Form/Route: INJECTABLE;INJECTION
Application: N020134 | Product #001 | TE Code: AP
Applicant: Q BIOMED INC
Approved: Jun 18, 1993 | RLD: Yes | RS: Yes | Type: RX